FAERS Safety Report 9372898 (Version 2)
Quarter: 2013Q3

REPORT INFORMATION
  Report Type: Spontaneous
  Country: CA (occurrence: None)
  Receive Date: 20130613
  Receipt Date: 20130729
  Transmission Date: 20140515
  Serious: No
  Sender: FDA-Public Use
  Company Number: CA-145436

PATIENT
  Age: 86 Year
  Sex: Female

DRUGS (1)
  1. WINRHO SDF [Suspect]
     Indication: IMMUNE THROMBOCYTOPENIC PURPURA
     Route: 040
     Dates: start: 20120623, end: 20120623

REACTIONS (1)
  - Delayed haemolytic transfusion reaction [None]
